FAERS Safety Report 9380455 (Version 2)
Quarter: 2013Q3

REPORT INFORMATION
  Report Type: Spontaneous
  Country: DE (occurrence: None)
  Receive Date: 20130628
  Receipt Date: 20130705
  Transmission Date: 20140515
  Serious: Yes (Death)
  Sender: FDA-Public Use
  Company Number: TPA2013A05911

PATIENT
  Sex: Male

DRUGS (2)
  1. ADENURIC (FEBUXOSTAT) [Suspect]
     Indication: GOUT
  2. AZATHIOPRIN [Suspect]

REACTIONS (3)
  - Death [None]
  - Sepsis [None]
  - Labelled drug-drug interaction medication error [None]
